FAERS Safety Report 7837243-0 (Version None)
Quarter: 2011Q4

REPORT INFORMATION
  Report Type: 
  Country: None (occurrence: None)
  Receive Date: 20111024
  Receipt Date: 20111018
  Transmission Date: 20120403
  Serious: Yes (Life-Threatening)
  Sender: FDA-Public Use
  Company Number: FR-ASTRAZENECA-2011SE62541

PATIENT
  Age: 26023 Day
  Sex: Female

DRUGS (9)
  1. GLUCOPHAGE [Suspect]
     Indication: TYPE 2 DIABETES MELLITUS
     Route: 048
     Dates: end: 20110721
  2. RABEPRAZOLE SODIUM [Concomitant]
     Route: 048
  3. SECTRAL [Suspect]
     Indication: HYPERTENSION
     Route: 048
     Dates: end: 20110721
  4. PREVISCAN [Concomitant]
     Route: 048
  5. LASIX [Concomitant]
     Route: 048
  6. ATACAND [Suspect]
     Indication: HYPERTENSION
     Route: 048
     Dates: end: 20110721
  7. ALDACTONE [Suspect]
     Indication: CARDIAC FAILURE
     Route: 048
     Dates: end: 20110721
  8. CORDARONE [Concomitant]
     Route: 048
  9. CACIT VITAMINE D3 [Concomitant]

REACTIONS (4)
  - ELECTROCARDIOGRAM QRS COMPLEX PROLONGED [None]
  - DEHYDRATION [None]
  - RENAL FAILURE ACUTE [None]
  - HYPERKALAEMIA [None]
